FAERS Safety Report 5367103-9 (Version None)
Quarter: 2007Q2

REPORT INFORMATION
  Report Type: 
  Country: None (occurrence: None)
  Receive Date: 20070622
  Receipt Date: 20060504
  Transmission Date: 20071010
  Serious: No
  Sender: FDA-Public Use
  Company Number: US-BRISTOL-MYERS SQUIBB COMPANY-13366448

PATIENT
  Sex: Female
  Weight: 73 kg

DRUGS (3)
  1. SINEMET [Suspect]
     Dates: start: 19950101
  2. COREG [Concomitant]
  3. LISINOPRIL [Concomitant]

REACTIONS (3)
  - BACK PAIN [None]
  - MUSCULAR WEAKNESS [None]
  - PAIN IN EXTREMITY [None]
